FAERS Safety Report 8518168-4 (Version None)
Quarter: 2012Q3

REPORT INFORMATION
  Report Type: 
  Country: None (occurrence: None)
  Receive Date: 20120718
  Receipt Date: 20111013
  Transmission Date: 20120928
  Serious: Yes (Hospitalization)
  Sender: FDA-Public Use
  Company Number: US-BRISTOL-MYERS SQUIBB COMPANY-16162299

PATIENT
  Age: 71 Year
  Sex: Female

DRUGS (2)
  1. LETAIRIS [Suspect]
     Dosage: TABS
     Route: 048
     Dates: start: 20080307, end: 20110913
  2. COUMADIN [Suspect]

REACTIONS (2)
  - HAEMORRHAGIC STROKE [None]
  - CONVULSION [None]
